FAERS Safety Report 17417512 (Version 1)
Quarter: 2020Q1

REPORT INFORMATION
  Report Type: Not Available
  Country: GB (occurrence: GB)
  Receive Date: 20200214
  Receipt Date: 20200214
  Transmission Date: 20200409
  Serious: Yes (Other)
  Sender: FDA-Public Use
  Company Number: GB-SYNTHON BV-IN51PV20_52206

PATIENT
  Age: 73 Year
  Sex: Male
  Weight: 88.9 kg

DRUGS (3)
  1. CREON [Concomitant]
     Active Substance: PANCRELIPASE AMYLASE\PANCRELIPASE LIPASE\PANCRELIPASE PROTEASE
     Dosage: UNK
  2. LANSOPRAZOLE. [Concomitant]
     Active Substance: LANSOPRAZOLE
     Dosage: UNK
  3. TAMSULOSIN [Suspect]
     Active Substance: TAMSULOSIN
     Indication: PROSTATOMEGALY
     Dosage: 400 MICROGRAM, QD
     Route: 048
     Dates: start: 20190822, end: 20190922

REACTIONS (6)
  - Atrial fibrillation [Recovering/Resolving]
  - Insomnia [Unknown]
  - Dizziness [Unknown]
  - Oropharyngeal pain [Unknown]
  - Headache [Unknown]
  - Sensory disturbance [Unknown]

NARRATIVE: CASE EVENT DATE: 20190828
